FAERS Safety Report 13028925 (Version 1)
Quarter: 2016Q4

REPORT INFORMATION
  Report Type: Spontaneous
  Country: GB (occurrence: GB)
  Receive Date: 20161214
  Receipt Date: 20161214
  Transmission Date: 20170207
  Serious: Yes (Other)
  Sender: FDA-Public Use
  Company Number: GB-JNJFOC-20161206275

PATIENT
  Age: 60 Year
  Sex: Male

DRUGS (6)
  1. NOVO-FENOFIBRATE MICRONIZED [Concomitant]
     Indication: PRODUCT USED FOR UNKNOWN INDICATION
     Dosage: 276 DOSES (UNIT UNSPECIFIED)
     Route: 065
  2. NON-DROWSY SUDAFED CONGESTION RELIEF (PHENYLEPHRINE HYDROCHLORIDE) [Suspect]
     Active Substance: PHENYLEPHRINE HYDROCHLORIDE
     Indication: NASAL CONGESTION
     Dosage: 1 DOSES (UNIT UNSPECIFIED)
     Route: 065
  3. ENOXAPARIN SODIUM. [Concomitant]
     Active Substance: ENOXAPARIN SODIUM
     Indication: PRODUCT USED FOR UNKNOWN INDICATION
     Dosage: 5 DOSES (UNIT UNSPECIFIED) 150 MG PER 1 ML
     Route: 065
  4. WARFARIN [Interacting]
     Active Substance: WARFARIN
     Indication: PRODUCT USED FOR UNKNOWN INDICATION
     Dosage: 2.3 DOSES (UNIT UNSPECIFIED)
     Route: 065
  5. EZETIMIBE. [Concomitant]
     Active Substance: EZETIMIBE
     Indication: PRODUCT USED FOR UNKNOWN INDICATION
     Dosage: DOSE: 10 DOSES UNITS UNSPECIFIED
     Route: 065
  6. ROSUVASTATIN. [Concomitant]
     Active Substance: ROSUVASTATIN
     Indication: PRODUCT USED FOR UNKNOWN INDICATION
     Dosage: 5 DOSES (UNIT UNSPECIFIED)
     Route: 065

REACTIONS (2)
  - Drug interaction [Unknown]
  - International normalised ratio decreased [Recovered/Resolved]
